FAERS Safety Report 8780368 (Version 1)
Quarter: 2012Q4

REPORT INFORMATION
  Report Type: Spontaneous
  Country: US (occurrence: None)
  Receive Date: 20120905
  Receipt Date: 20120905
  Transmission Date: 20130627
  Serious: Yes (Life-Threatening, Other)
  Sender: FDA-Public Use
  Company Number: None

PATIENT
  Age: 64 Year
  Sex: Male
  Weight: 78.02 kg

DRUGS (1)
  1. CLONIDINE [Suspect]
     Indication: ELEVATED BP
     Dates: start: 20120606, end: 20120609

REACTIONS (2)
  - Confusional state [None]
  - Mental status changes [None]
